FAERS Safety Report 20131696 (Version 1)
Quarter: 2021Q4

REPORT INFORMATION
  Report Type: Spontaneous
  Country: DE (occurrence: DE)
  Receive Date: 20211130
  Receipt Date: 20211130
  Transmission Date: 20220303
  Serious: Yes (Other)
  Sender: FDA-Public Use
  Company Number: DE-002147023-NVSC2021DE222004

PATIENT
  Age: 77 Year
  Sex: Female

DRUGS (2)
  1. CYTARABINE [Suspect]
     Active Substance: CYTARABINE
     Indication: Acute myeloid leukaemia
     Dosage: UNK
     Route: 065
  2. ELIQUIS [Suspect]
     Active Substance: APIXABAN
     Indication: Product used for unknown indication
     Dosage: UNK
     Route: 065

REACTIONS (13)
  - Megakaryocytes abnormal [Unknown]
  - Myeloproliferative neoplasm [Unknown]
  - Acute myeloid leukaemia [Unknown]
  - Fatigue [Unknown]
  - Myelofibrosis [Unknown]
  - Myelodysplastic syndrome [Unknown]
  - Myelosuppression [Unknown]
  - Blood lactate dehydrogenase increased [Unknown]
  - Blood disorder [Unknown]
  - Dyspnoea [Unknown]
  - Haematoma [Unknown]
  - Osteoarthritis [Unknown]
  - Leukocytosis [Unknown]

NARRATIVE: CASE EVENT DATE: 20200101
